FAERS Safety Report 17096610 (Version 1)
Quarter: 2019Q4

REPORT INFORMATION
  Report Type: Spontaneous
  Country: FR (occurrence: FR)
  Receive Date: 20191202
  Receipt Date: 20191202
  Transmission Date: 20200122
  Serious: Yes (Death, Hospitalization)
  Sender: FDA-Public Use
  Company Number: FR-TEVA-2019-FR-1143936

PATIENT
  Age: 72 Year
  Sex: Female
  Weight: 64 kg

DRUGS (7)
  1. DOXORUBICINE [Suspect]
     Active Substance: DOXORUBICIN
     Indication: HODGKIN^S DISEASE
     Dosage: 25MG/M2, 1 CYCLICAL
     Route: 042
     Dates: start: 201906, end: 201909
  2. ENALAPRIL (MALEATE D) [Suspect]
     Active Substance: ENALAPRIL MALEATE
     Indication: HYPERTENSION
     Dosage: 20MG PER DAY
     Route: 048
     Dates: end: 201910
  3. LERCANIDIPINE (CHLORHYDRATE DE) [Suspect]
     Active Substance: LERCANIDIPINE HYDROCHLORIDE
     Indication: HYPERTENSION
     Dosage: 20MG PER DAY
     Route: 048
     Dates: end: 201910
  4. VINBLASTINE (SULFATE DE) [Suspect]
     Active Substance: VINBLASTINE SULFATE
     Indication: HODGKIN^S DISEASE
     Dosage: 6MG/M2, 1 CYCLICAL
     Route: 042
     Dates: start: 201906, end: 201909
  5. BLEOMYCINE [Suspect]
     Active Substance: BLEOMYCIN SULFATE
     Indication: HODGKIN^S DISEASE
     Dosage: 10MG/M2, 1 CYCLICAL
     Route: 042
     Dates: start: 201906, end: 201909
  6. LEVOTHYROX 100 MICROGRAMMES, COMPRIME SECABLE [Suspect]
     Active Substance: LEVOTHYROXINE
     Indication: HYPOTHYROIDISM
     Dosage: 1 DOSAGE FORM PER DAY
     Route: 048
     Dates: end: 201910
  7. DACARBAZINE. [Suspect]
     Active Substance: DACARBAZINE
     Indication: HODGKIN^S DISEASE
     Dosage: 750MG/M2, 1 CYCLICAL
     Route: 042
     Dates: start: 201906, end: 201909

REACTIONS (1)
  - Lung disorder [Fatal]

NARRATIVE: CASE EVENT DATE: 20191004
